FAERS Safety Report 9418108 (Version 2)
Quarter: 2013Q3

REPORT INFORMATION
  Report Type: Spontaneous
  Country: GB (occurrence: GB)
  Receive Date: 20130724
  Receipt Date: 20130815
  Transmission Date: 20140515
  Serious: Yes (Other)
  Sender: FDA-Public Use
  Company Number: GB-ABBOTT-13P-167-1124621-00

PATIENT
  Sex: Female
  Weight: 62 kg

DRUGS (2)
  1. HUMIRA [Suspect]
     Indication: CROHN^S DISEASE
     Dosage: UNKNOWN
     Route: 058
     Dates: start: 20110113, end: 20111201
  2. HUMIRA [Suspect]

REACTIONS (3)
  - Sepsis [Recovered/Resolved]
  - Anal abscess [Recovered/Resolved]
  - Fistula [Recovered/Resolved]
